FAERS Safety Report 14525385 (Version 2)
Quarter: 2018Q1

REPORT INFORMATION
  Report Type: Report from Study
  Country: US (occurrence: US)
  Receive Date: 20180213
  Receipt Date: 20180228
  Transmission Date: 20180509
  Serious: Yes (Hospitalization)
  Sender: FDA-Public Use
  Company Number: US-BIOGEN-2018BI00522380

PATIENT
  Age: 39 Year
  Sex: Male

DRUGS (1)
  1. ZINBRYTA [Suspect]
     Active Substance: DACLIZUMAB
     Indication: MULTIPLE SCLEROSIS
     Route: 058
     Dates: start: 20180102, end: 201802

REACTIONS (4)
  - Loss of consciousness [Unknown]
  - Muscular weakness [Unknown]
  - Memory impairment [Unknown]
  - Overdose [Unknown]

NARRATIVE: CASE EVENT DATE: 20180102
